FAERS Safety Report 6522287 (Version 2)
Quarter: 2013Q1

REPORT INFORMATION
  Report Type: Spontaneous
  Country: GB (occurrence: GB)
  Receive Date: 20080109
  Receipt Date: 20130321
  Transmission Date: 20140127
  Serious: Yes (Hospitalization)
  Sender: FDA-Public Use
  Company Number: GB-JNJFOC-20080100826

PATIENT
  Age: 58 Year
  Sex: Female

DRUGS (8)
  1. IBUPROFEN [Suspect]
     Indication: BACK PAIN
     Route: 048
     Dates: start: 20071007, end: 20071218
  2. DICLOFENAC [Suspect]
     Indication: BACK PAIN
     Route: 048
     Dates: start: 20070926, end: 20071218
  3. ATROVENT [Concomitant]
     Indication: ASTHMA
     Route: 055
     Dates: start: 20071129
  4. CO-CODAMOL [Concomitant]
     Indication: BACK PAIN
     Route: 048
     Dates: start: 20071027
  5. DOMPERIDONE [Concomitant]
     Indication: ANTIEMETIC SUPPORTIVE CARE
     Route: 048
  6. GAVISCON ADVANCE [Concomitant]
     Indication: DYSPEPSIA
     Route: 048
     Dates: start: 20070926
  7. OMEPRAZOLE [Concomitant]
     Indication: PROPHYLAXIS AGAINST GASTROINTESTINAL ULCER
     Route: 048
     Dates: start: 20071020
  8. SALBUTAMOL [Concomitant]
     Indication: ASTHMA
     Route: 055
     Dates: start: 20071129

REACTIONS (2)
  - Haematemesis [Not Recovered/Not Resolved]
  - Convulsion [Not Recovered/Not Resolved]
